FAERS Safety Report 9395119 (Version 1)
Quarter: 2013Q3

REPORT INFORMATION
  Report Type: Spontaneous
  Country: US (occurrence: US)
  Receive Date: 20130711
  Receipt Date: 20130711
  Transmission Date: 20140515
  Serious: Yes (Death)
  Sender: FDA-Public Use
  Company Number: US-CELGENEUS-163-20785-13052086

PATIENT
  Age: 44 Year
  Sex: Female

DRUGS (3)
  1. THALOMID [Suspect]
     Indication: PRODUCT USED FOR UNKNOWN INDICATION
     Dosage: 300 MILLIGRAM
     Route: 048
     Dates: start: 20130419, end: 20130423
  2. SIROLIMUS [Concomitant]
     Indication: GRAFT VERSUS HOST DISEASE
     Dosage: 7 MILLIGRAM
     Route: 048
     Dates: start: 20130424, end: 20130428
  3. CELLCEPT [Concomitant]
     Indication: GRAFT VERSUS HOST DISEASE
     Dosage: 3000 MILLIGRAM
     Route: 041
     Dates: start: 20130422, end: 20130428

REACTIONS (2)
  - Graft versus host disease [Fatal]
  - Disease progression [Fatal]
